FAERS Safety Report 8569211-8 (Version None)
Quarter: 2012Q3

REPORT INFORMATION
  Report Type: 
  Country: None (occurrence: None)
  Receive Date: 20120803
  Receipt Date: 20120201
  Transmission Date: 20120928
  Serious: No
  Sender: FDA-Public Use
  Company Number: US-ABBOTT-12P-163-0900998-00

PATIENT

DRUGS (12)
  1. NIASPAN [Suspect]
     Indication: PRODUCT USED FOR UNKNOWN INDICATION
  2. FLUTICASONE PROPIONATE [Concomitant]
     Indication: PRODUCT USED FOR UNKNOWN INDICATION
     Dosage: 250/50 ONE INHALATION 2 TIMES A DAY-RINSE MOUTH AFTER USING
  3. SPIRIVA [Concomitant]
     Indication: LUNG DISORDER
  4. PROAIR HFA [Concomitant]
     Indication: DYSPNOEA
     Dosage: HFA 2 INHALATIONS EVERY 6 HRS AS NEEDED
  5. FUROSEMIDE [Concomitant]
     Indication: ILL-DEFINED DISORDER
  6. WELCHOL [Concomitant]
     Indication: PRODUCT USED FOR UNKNOWN INDICATION
  7. PROAIR HFA [Concomitant]
     Indication: WHEEZING
  8. SPIRONOLACTONE [Concomitant]
     Indication: ILL-DEFINED DISORDER
  9. LIPITOR [Concomitant]
     Indication: BLOOD CHOLESTEROL INCREASED
  10. KLONOPIN [Concomitant]
     Indication: PRODUCT USED FOR UNKNOWN INDICATION
     Dosage: 1/2 PILL UP TO 2 TIMES A DAY
  11. ZETIA [Concomitant]
     Indication: BLOOD CHOLESTEROL
  12. LISINOPRIL [Concomitant]
     Indication: CARDIAC DISORDER

REACTIONS (1)
  - EOSINOPHIL COUNT INCREASED [None]
